FAERS Safety Report 5660177-7 (Version None)
Quarter: 2008Q1

REPORT INFORMATION
  Report Type: 
  Country: None (occurrence: None)
  Receive Date: 20080310
  Receipt Date: 20080310
  Transmission Date: 20080703
  Serious: Yes (Life-Threatening, Hospitalization)
  Sender: FDA-Public Use
  Company Number: None

PATIENT
  Age: 50 Year
  Sex: Male
  Weight: 99.7913 kg

DRUGS (2)
  1. AVALIDE [Suspect]
     Indication: HYPERTENSION
     Dosage: 1 PILL DAILY PO
     Route: 048
     Dates: start: 20060601, end: 20070830
  2. LISINOPRIL [Suspect]
     Indication: HYPERTENSION
     Dosage: 1PILL DAILY PO
     Route: 048
     Dates: start: 20060601, end: 20070829

REACTIONS (8)
  - CARDIAC FAILURE CONGESTIVE [None]
  - MULTI-ORGAN DISORDER [None]
  - MUSCLE SPASMS [None]
  - OEDEMA PERIPHERAL [None]
  - PNEUMONIA [None]
  - RENAL PAIN [None]
  - RESPIRATORY FAILURE [None]
  - VOMITING [None]
